FAERS Safety Report 11747926 (Version 1)
Quarter: 2015Q4

REPORT INFORMATION
  Report Type: Spontaneous
  Country: US (occurrence: US)
  Receive Date: 20151117
  Receipt Date: 20151117
  Transmission Date: 20160304
  Serious: Yes (Other)
  Sender: FDA-Public Use
  Company Number: PHHY2015US145168

PATIENT
  Age: 57 Year
  Sex: Male

DRUGS (5)
  1. DOLASETRON [Concomitant]
     Active Substance: DOLASETRON
     Dosage: 100 MG, UNK
     Route: 048
  2. DOLASETRON [Concomitant]
     Active Substance: DOLASETRON
     Indication: PRODUCT USED FOR UNKNOWN INDICATION
     Dosage: 100 MG, UNK
     Route: 042
  3. CARBOPLATIN. [Suspect]
     Active Substance: CARBOPLATIN
     Indication: SMALL CELL LUNG CANCER
     Route: 065
  4. PROCHLORPERAZINE. [Concomitant]
     Active Substance: PROCHLORPERAZINE
     Indication: PRODUCT USED FOR UNKNOWN INDICATION
     Dosage: 10 MG, UNK
     Route: 042
  5. ETOPOSIDE. [Suspect]
     Active Substance: ETOPOSIDE
     Indication: SMALL CELL LUNG CANCER
     Dosage: 100 MG/M2, UNK
     Route: 065

REACTIONS (8)
  - Cellulitis [Unknown]
  - Pleural effusion [Unknown]
  - Weight decreased [Unknown]
  - Oedema peripheral [Unknown]
  - Febrile neutropenia [Unknown]
  - Pseudomonas infection [Unknown]
  - Nausea [Unknown]
  - Vomiting [Unknown]
